FAERS Safety Report 15695149 (Version 1)
Quarter: 2018Q4

REPORT INFORMATION
  Report Type: Spontaneous
  Country: US (occurrence: US)
  Receive Date: 20181126
  Receipt Date: 20181126
  Transmission Date: 20190205
  Serious: Yes (Hospitalization)
  Sender: FDA-Public Use
  Company Number: None

PATIENT
  Age: 32 Year
  Sex: Male
  Weight: 60.9 kg

DRUGS (1)
  1. INTRON A [Suspect]
     Active Substance: INTERFERON ALFA-2B
     Dosage: ?          OTHER DOSE:180 MU;?
     Dates: end: 20120427

REACTIONS (4)
  - Skin depigmentation [None]
  - Malignant neoplasm progression [None]
  - Vitiligo [None]
  - Metastatic malignant melanoma [None]

NARRATIVE: CASE EVENT DATE: 20120611
